FAERS Safety Report 24143209 (Version 1)
Quarter: 2024Q3

REPORT INFORMATION
  Report Type: Spontaneous
  Country: FR (occurrence: FR)
  Receive Date: 20240726
  Receipt Date: 20240726
  Transmission Date: 20241016
  Serious: Yes (Other)
  Sender: MERCK
  Company Number: FR-MERCK-1201FRA00051

PATIENT
  Sex: Male

DRUGS (12)
  1. EMEND [Interacting]
     Active Substance: APREPITANT
     Dosage: 125 MG, QD
     Route: 048
     Dates: start: 20111130, end: 20111130
  2. EMEND [Interacting]
     Active Substance: APREPITANT
     Dosage: 80 MG, QD
     Route: 048
     Dates: start: 20111201, end: 20111202
  3. EMEND [Interacting]
     Active Substance: APREPITANT
     Dosage: 125 MG, QD
     Route: 048
     Dates: start: 20111214, end: 20111214
  4. EMEND [Interacting]
     Active Substance: APREPITANT
     Dosage: 80 MG, QD
     Route: 048
     Dates: start: 20111215, end: 20111216
  5. EMEND [Interacting]
     Active Substance: APREPITANT
     Dosage: 125 MG, QD
     Route: 048
     Dates: start: 20111228, end: 20111228
  6. EMEND [Interacting]
     Active Substance: APREPITANT
     Dosage: 80 MG, QD
     Route: 048
     Dates: start: 20111229, end: 20111230
  7. EMEND [Interacting]
     Active Substance: APREPITANT
     Dosage: 125 MG, QD
     Route: 048
     Dates: start: 20120111, end: 20120111
  8. IRINOTECAN HYDROCHLORIDE [Interacting]
     Active Substance: IRINOTECAN HYDROCHLORIDE
     Indication: Colorectal cancer
     Dates: start: 20110815, end: 20120111
  9. IRINOTECAN HYDROCHLORIDE [Interacting]
     Active Substance: IRINOTECAN HYDROCHLORIDE
     Dates: start: 20120201
  10. FLUOROURACIL [Concomitant]
     Active Substance: FLUOROURACIL
     Indication: Colorectal cancer
  11. MK-9039 [Concomitant]
  12. ATROPINE [Concomitant]
     Active Substance: ATROPINE

REACTIONS (3)
  - Lipase increased [Recovering/Resolving]
  - Drug interaction [Recovering/Resolving]
  - Metastases to pancreas [Not Recovered/Not Resolved]

NARRATIVE: CASE EVENT DATE: 20120101
